FAERS Safety Report 6006791-0 (Version None)
Quarter: 2008Q4

REPORT INFORMATION
  Report Type: 
  Country: None (occurrence: None)
  Receive Date: 20081217
  Receipt Date: 20081208
  Transmission Date: 20090506
  Serious: Yes (Hospitalization)
  Sender: FDA-Public Use
  Company Number: DK-TEVA-182441ISR

PATIENT
  Sex: Male

DRUGS (2)
  1. METHOTREXATE [Suspect]
     Indication: PSORIATIC ARTHROPATHY
     Dates: start: 20030901, end: 20050726
  2. OFLOXACIN [Concomitant]

REACTIONS (4)
  - CONDITION AGGRAVATED [None]
  - PHOTOSENSITIVITY REACTION [None]
  - PSORIATIC ARTHROPATHY [None]
  - TUBERCULOSIS [None]
